FAERS Safety Report 4803074-9 (Version None)
Quarter: 2005Q4

REPORT INFORMATION
  Report Type: 
  Country: None (occurrence: None)
  Receive Date: 20051013
  Receipt Date: 20050922
  Transmission Date: 20060501
  Serious: Yes (Other)
  Sender: FDA-Public Use
  Company Number: USA0509109051

PATIENT
  Sex: Female

DRUGS (1)
  1. EVISTA [Suspect]
     Dosage: 60 MG

REACTIONS (3)
  - ARTERIAL DISORDER [None]
  - ARTERIAL HAEMORRHAGE [None]
  - RECTAL HAEMORRHAGE [None]
